FAERS Safety Report 5228341-9 (Version None)
Quarter: 2007Q1

REPORT INFORMATION
  Report Type: 
  Country: None (occurrence: None)
  Receive Date: 20070131
  Receipt Date: 20070131
  Transmission Date: 20070707
  Serious: Yes (Other)
  Sender: FDA-Public Use
  Company Number: None

PATIENT
  Sex: Male
  Weight: 51.7101 kg

DRUGS (2)
  1. ZOLOFT [Suspect]
     Dosage: 100 MG 1QD PO
     Route: 048
     Dates: start: 20060801, end: 20060901
  2. ZOLOFT [Suspect]
     Dosage: 25 MG 1 QD PO
     Route: 048
     Dates: start: 20060801, end: 20060901

REACTIONS (3)
  - DRUG EFFECT DECREASED [None]
  - OBSESSIVE-COMPULSIVE DISORDER [None]
  - THERAPEUTIC RESPONSE UNEXPECTED WITH DRUG SUBSTITUTION [None]
